FAERS Safety Report 24217370 (Version 1)
Quarter: 2024Q3

REPORT INFORMATION
  Report Type: Spontaneous
  Country: US (occurrence: US)
  Receive Date: 20240816
  Receipt Date: 20240816
  Transmission Date: 20241016
  Serious: No
  Sender: ELI LILLY AND CO
  Company Number: US-ELI_LILLY_AND_COMPANY-US202408003249

PATIENT
  Age: 79 Year
  Sex: Female

DRUGS (3)
  1. BASAGLAR [Suspect]
     Active Substance: INSULIN GLARGINE
     Indication: Diabetes mellitus
     Dosage: UNK UNK, UNKNOWN
     Route: 065
     Dates: start: 202406, end: 202407
  2. TRESIBA [Suspect]
     Active Substance: INSULIN DEGLUDEC
     Indication: Diabetes mellitus
     Dosage: UNK UNK, UNKNOWN
     Route: 065
  3. NOVOLOG [Concomitant]
     Active Substance: INSULIN ASPART
     Indication: Diabetes mellitus

REACTIONS (6)
  - Headache [Recovered/Resolved]
  - Abdominal pain upper [Recovering/Resolving]
  - Inflammatory bowel disease [Recovering/Resolving]
  - Muscle spasms [Recovering/Resolving]
  - Fall [Unknown]
  - Pain in extremity [Unknown]

NARRATIVE: CASE EVENT DATE: 20240803
